FAERS Safety Report 9778343 (Version 1)
Quarter: 2013Q4

REPORT INFORMATION
  Report Type: Spontaneous
  Country: DZ (occurrence: DZ)
  Receive Date: 20131223
  Receipt Date: 20131223
  Transmission Date: 20140711
  Serious: Yes (Other)
  Sender: FDA-Public Use
  Company Number: PHHY2013DZ146804

PATIENT
  Age: 27 Year
  Sex: Female

DRUGS (2)
  1. BROMOCRIPTINE [Suspect]
     Indication: PROLACTINOMA
  2. CABERGOLINE [Suspect]
     Indication: PROLACTINOMA

REACTIONS (5)
  - Cerebrovascular accident [Unknown]
  - Prolactinoma [Recovering/Resolving]
  - Visual acuity reduced [Recovering/Resolving]
  - Blood prolactin increased [Recovering/Resolving]
  - Drug ineffective [Unknown]
